FAERS Safety Report 22186835 (Version 2)
Quarter: 2024Q2

REPORT INFORMATION
  Report Type: Spontaneous
  Country: US (occurrence: US)
  Receive Date: 20230407
  Receipt Date: 20240516
  Transmission Date: 20240717
  Serious: No
  Sender: FDA-Public Use
  Company Number: US-UCBSA-2023015459

PATIENT

DRUGS (1)
  1. NEUPRO [Suspect]
     Active Substance: ROTIGOTINE
     Indication: Restless legs syndrome
     Dosage: 2MG
     Route: 062
     Dates: start: 20230301

REACTIONS (1)
  - Product adhesion issue [Unknown]

NARRATIVE: CASE EVENT DATE: 20230301
